FAERS Safety Report 13233523 (Version 1)
Quarter: 2017Q1

REPORT INFORMATION
  Report Type: Spontaneous
  Country: US (occurrence: US)
  Receive Date: 20170214
  Receipt Date: 20170214
  Transmission Date: 20170428
  Serious: Yes (Hospitalization)
  Sender: FDA-Public Use
  Company Number: None

PATIENT
  Age: 59 Year
  Sex: Female

DRUGS (2)
  1. TACROLIMUS 1MG [Suspect]
     Active Substance: TACROLIMUS
  2. MYCOPHENOLATE MOFETIL 360 MG [Suspect]
     Active Substance: MYCOPHENOLATE SODIUM

REACTIONS (3)
  - Blood creatinine increased [None]
  - Hyperkalaemia [None]
  - Drug level above therapeutic [None]

NARRATIVE: CASE EVENT DATE: 20150110
